FAERS Safety Report 18675304 (Version 1)
Quarter: 2020Q4

REPORT INFORMATION
  Report Type: Spontaneous
  Country: US (occurrence: US)
  Receive Date: 20201228
  Receipt Date: 20201228
  Transmission Date: 20210114
  Serious: Yes (Other)
  Sender: FDA-Public Use
  Company Number: None

PATIENT
  Age: 50 Year
  Sex: Female
  Weight: 71.6 kg

DRUGS (1)
  1. CARBOPLATIN. [Suspect]
     Active Substance: CARBOPLATIN
     Indication: NEOPLASM MALIGNANT
     Dosage: ?          OTHER FREQUENCY:EVERY 7 DAYS;?
     Route: 040
     Dates: start: 20201130, end: 20201130

REACTIONS (3)
  - Pruritus [None]
  - Urticaria [None]
  - Contraindicated product administered [None]

NARRATIVE: CASE EVENT DATE: 20201130
